FAERS Safety Report 12136410 (Version 12)
Quarter: 2020Q4

REPORT INFORMATION
  Report Type: Spontaneous
  Country: US (occurrence: US)
  Receive Date: 20160302
  Receipt Date: 20201216
  Transmission Date: 20210113
  Serious: Yes (Other)
  Sender: FDA-Public Use
  Company Number: US-PFIZER INC-2015343879

PATIENT
  Age: 36 Year
  Sex: Female
  Weight: 109 kg

DRUGS (20)
  1. LYRICA [Suspect]
     Active Substance: PREGABALIN
     Indication: NEURALGIA
     Dosage: 400 MG, DAILY (1 DF BID AND 2 CAPS AT NIGHT)
     Dates: start: 20150923
  2. LYRICA [Suspect]
     Active Substance: PREGABALIN
     Dosage: 100 MG, 4X/DAY (ONE CAPSULE Q 6HRS)
     Route: 048
  3. LYRICA [Suspect]
     Active Substance: PREGABALIN
     Dosage: 400 MG, DAILY  (DAILY IN DIVIDED DOSES)
     Route: 048
  4. NORCO [Concomitant]
     Active Substance: ACETAMINOPHEN\HYDROCODONE BITARTRATE
     Dosage: 2 DF, UNK (HYDROCODONE BITARTRATE-10, PARACETAMOL-325, 2 PILLS OF NORCO)
  5. TIZANIDINE. [Concomitant]
     Active Substance: TIZANIDINE
     Dosage: 3 DF, UNK
  6. LYRICA [Suspect]
     Active Substance: PREGABALIN
     Dosage: UNK, 2X/DAY (TAKE 1-2 CAPSULES BY MOUTH TWICE A DAY AS DIRECTED)
     Route: 048
  7. LIDEX [Concomitant]
     Active Substance: FLUOCINONIDE
     Dosage: UNK, 2X/DAY (APPLY TO AFFECTED AREA 2 TIMES DAILY)
  8. HYDROCHLOROTHIAZIDE. [Concomitant]
     Active Substance: HYDROCHLOROTHIAZIDE
     Dosage: 25 MG, DAILY
     Route: 048
  9. LYRICA [Suspect]
     Active Substance: PREGABALIN
     Dosage: 100 MG, UNK (QTY 120)
  10. ROBAXIN-750 [Concomitant]
     Active Substance: METHOCARBAMOL
     Dosage: 750 MG, 3X/DAY
     Route: 048
  11. LYRICA [Suspect]
     Active Substance: PREGABALIN
     Indication: PAIN
     Dosage: UNK
  12. MELATONIN [Concomitant]
     Active Substance: MELATONIN
     Indication: SLEEP DISORDER
     Dosage: 20 MG, 1X/DAY
     Route: 048
  13. NAPROSYN [Concomitant]
     Active Substance: NAPROXEN
     Dosage: 500 MG, 2X/DAY (TAKE 1 TABLET (500 MG) BY MOUTH 2 TIMES DAILY WITH MEALS)
     Route: 048
  14. NORCO [Concomitant]
     Active Substance: ACETAMINOPHEN\HYDROCODONE BITARTRATE
     Indication: PAIN
     Dosage: 1 DF, AS NEEDED (HYDROCODONE BITARTRATE 10MG, PARACETAMOL325MG, TAKE 1 TABLET BY MOUTH EVERY 6 HOUR)
     Route: 048
  15. SYNTHROID [Concomitant]
     Active Substance: LEVOTHYROXINE SODIUM
     Dosage: 137 UG, 1X/DAY (TAKE 1 TABLET BY MOUTH EVERY MORNING)
     Route: 048
  16. BUTRANS [Concomitant]
     Active Substance: BUPRENORPHINE
     Dosage: 1 DF, WEEKLY (10MCG/HR PATCH, 1PATCH TO SKIN AS DIRECTED EVERY 7 DAYS)
  17. CELEXA [Concomitant]
     Active Substance: CITALOPRAM HYDROBROMIDE
     Dosage: 40 MG, 1X/DAY(TAKE 1 TAB BY MOUTH DAILY AT BEDTIME)
     Route: 048
  18. EPIDUO [Concomitant]
     Active Substance: ADAPALENE\BENZOYL PEROXIDE
     Dosage: UNK (APPLY TO AFFECTED AREA)
  19. LYRICA [Suspect]
     Active Substance: PREGABALIN
     Indication: FIBROMYALGIA
     Dosage: 100 MG, 4X/DAY
     Dates: start: 2011
  20. KLONOPIN [Concomitant]
     Active Substance: CLONAZEPAM
     Dosage: 1 MG, 3X/DAY
     Route: 048

REACTIONS (10)
  - Feeling abnormal [Unknown]
  - Blood pressure increased [Unknown]
  - Urinary incontinence [Unknown]
  - Suicidal ideation [Unknown]
  - Intentional product misuse [Unknown]
  - Insomnia [Unknown]
  - Gait disturbance [Not Recovered/Not Resolved]
  - Pain [Not Recovered/Not Resolved]
  - Withdrawal syndrome [Unknown]
  - Muscular weakness [Unknown]
